FAERS Safety Report 6555087-7 (Version None)
Quarter: 2010Q1

REPORT INFORMATION
  Report Type: 
  Country: None (occurrence: None)
  Receive Date: 20100126
  Receipt Date: 20100126
  Transmission Date: 20100710
  Serious: Yes (Hospitalization)
  Sender: FDA-Public Use
  Company Number: None

PATIENT
  Age: 61 Year
  Sex: Male
  Weight: 108 kg

DRUGS (2)
  1. SULFAMETHOXAZOLE AND TRIMETHOPRIM [Suspect]
     Indication: ARTHROPOD BITE
     Dosage: 800/160 MG BID PO
     Route: 048
     Dates: start: 20090814, end: 20090824
  2. SULFAMETHOXAZOLE AND TRIMETHOPRIM [Suspect]
     Indication: STAPHYLOCOCCAL INFECTION
     Dosage: 800/160 MG BID PO
     Route: 048
     Dates: start: 20090814, end: 20090824

REACTIONS (15)
  - CHROMATURIA [None]
  - FATIGUE [None]
  - HEADACHE [None]
  - HEPATIC PAIN [None]
  - HYPOKALAEMIA [None]
  - HYPONATRAEMIA [None]
  - LIVER FUNCTION TEST ABNORMAL [None]
  - NAUSEA [None]
  - PAIN [None]
  - PYREXIA [None]
  - RENAL PAIN [None]
  - SEPSIS [None]
  - THROMBOCYTOPENIA [None]
  - VIRAL INFECTION [None]
  - VOMITING [None]
